FAERS Safety Report 9137936 (Version 1)
Quarter: 2013Q1

REPORT INFORMATION
  Report Type: Spontaneous
  Country: US (occurrence: US)
  Receive Date: 20130304
  Receipt Date: 20130304
  Transmission Date: 20140127
  Serious: No
  Sender: FDA-Public Use
  Company Number: US-ABBOTT-12P-163-0927467-00

PATIENT
  Sex: Male
  Weight: 86.26 kg

DRUGS (4)
  1. ANDROGEL 1% [Suspect]
     Indication: BLOOD TESTOSTERONE DECREASED
     Dosage: 4 PUMP ACTUATIONS, ONCE DAILY
     Route: 061
     Dates: start: 2011, end: 201203
  2. DIOVAN [Concomitant]
     Indication: HYPERTENSION
     Dates: end: 201203
  3. DIOVAN [Concomitant]
     Dates: start: 201203
  4. NORVASC [Concomitant]
     Indication: HYPERTENSION

REACTIONS (3)
  - Therapy cessation [Not Recovered/Not Resolved]
  - Headache [Recovering/Resolving]
  - Hypertension [Recovering/Resolving]
